FAERS Safety Report 6615212-6 (Version None)
Quarter: 2010Q1

REPORT INFORMATION
  Report Type: 
  Country: None (occurrence: None)
  Receive Date: 20100305
  Receipt Date: 20100223
  Transmission Date: 20100710
  Serious: Yes (Hospitalization)
  Sender: FDA-Public Use
  Company Number: CH-NOVOPROD-304837

PATIENT
  Age: 46 Year
  Sex: Male

DRUGS (2)
  1. NOVORAPID FLEXPEN [Suspect]
     Indication: TYPE 1 DIABETES MELLITUS
     Dosage: 500 U, SINGLE
     Route: 058
     Dates: start: 20100208, end: 20100208
  2. LANTUS [Concomitant]
     Indication: TYPE 1 DIABETES MELLITUS
     Dosage: 60 U, SINGLE
     Route: 058
     Dates: start: 20100208, end: 20100208

REACTIONS (4)
  - HYPOGLYCAEMIA [None]
  - INTENTIONAL OVERDOSE [None]
  - NEUROLOGICAL EXAMINATION ABNORMAL [None]
  - SUICIDE ATTEMPT [None]
